FAERS Safety Report 15409575 (Version 1)
Quarter: 2018Q3

REPORT INFORMATION
  Report Type: Report from Study
  Country: US (occurrence: US)
  Receive Date: 20180920
  Receipt Date: 20180920
  Transmission Date: 20181010
  Serious: Yes (Hospitalization)
  Sender: FDA-Public Use
  Company Number: US-ACTELION-A-NJ2018-179006

PATIENT
  Age: 62 Year
  Sex: Female

DRUGS (22)
  1. ORENITRAM [Concomitant]
     Active Substance: TREPROSTINIL
     Dosage: 0.125 MG, UNK
     Dates: start: 20180314
  2. MULTAQ [Concomitant]
     Active Substance: DRONEDARONE
     Dosage: 400 MG, UNK
     Dates: start: 20160831
  3. OMEPRAZOLE. [Concomitant]
     Active Substance: OMEPRAZOLE
     Dosage: 40 MG, UNK
     Dates: start: 20160527
  4. IRON [Concomitant]
     Active Substance: IRON
     Dosage: 100
     Dates: start: 20171017
  5. GENTAMICIN. [Concomitant]
     Active Substance: GENTAMICIN
     Dosage: 0.1%, UNK
     Dates: start: 20180616
  6. FUROSEMIDE. [Concomitant]
     Active Substance: FUROSEMIDE
     Dosage: 40 MG, UNK
     Dates: start: 20180809
  7. BREO ELLIPTA [Concomitant]
     Active Substance: FLUTICASONE FUROATE\VILANTEROL TRIFENATATE
     Dosage: UNK
     Route: 055
     Dates: start: 20160212
  8. OPSUMIT [Suspect]
     Active Substance: MACITENTAN
     Indication: PULMONARY HYPERTENSION
     Dosage: 10 MG, QD
     Route: 048
     Dates: start: 20170808
  9. ADEMPAS [Concomitant]
     Active Substance: RIOCIGUAT
     Dosage: 0.5 MG, UNK
  10. HEMAX [Concomitant]
     Dosage: UNK
     Dates: start: 20180730
  11. FOLIC ACID. [Concomitant]
     Active Substance: FOLIC ACID
     Dosage: 1 MG, UNK
     Dates: start: 20160527
  12. CALCIFEROL [Concomitant]
     Active Substance: ERGOCALCIFEROL
     Dosage: 8000/MLUNK
     Dates: start: 20161123
  13. VITAMIN D [Concomitant]
     Active Substance: CHOLECALCIFEROL
     Dosage: 50000 U, UNK
     Dates: start: 20170816
  14. GABAPENTIN. [Concomitant]
     Active Substance: GABAPENTIN
     Dosage: 300 MG, UNK
     Dates: start: 20160831
  15. CYCLOBENZAPRINE. [Concomitant]
     Active Substance: CYCLOBENZAPRINE
     Dosage: 10 MG, UNK
     Dates: start: 20180831
  16. AMOXICILLIN. [Concomitant]
     Active Substance: AMOXICILLIN
  17. ELIQUIS [Concomitant]
     Active Substance: APIXABAN
     Dosage: 5 MG, UNK
     Dates: start: 20180831
  18. METHOTREXATE. [Concomitant]
     Active Substance: METHOTREXATE
     Dosage: 2.5 MG, UNK
     Dates: start: 20160527
  19. ACTEMRA [Concomitant]
     Active Substance: TOCILIZUMAB
     Dosage: 80 MG/4 ML
     Dates: start: 20160527
  20. XARELTO [Concomitant]
     Active Substance: RIVAROXABAN
     Dosage: 15 MG, UNK
     Dates: start: 20170118
  21. DOXYCYCLINE HYCLATE. [Concomitant]
     Active Substance: DOXYCYCLINE HYCLATE
     Dosage: 100 MG, UNK
     Dates: start: 20180911
  22. DILTIAZEM. [Concomitant]
     Active Substance: DILTIAZEM
     Dosage: 180 MG, UNK
     Dates: start: 20180831

REACTIONS (3)
  - Memory impairment [Unknown]
  - Cellulitis [Unknown]
  - Drug dose omission [Unknown]

NARRATIVE: CASE EVENT DATE: 20180821
